FAERS Safety Report 7126619-5 (Version None)
Quarter: 2010Q4

REPORT INFORMATION
  Report Type: 
  Country: None (occurrence: None)
  Receive Date: 20101129
  Receipt Date: 20101015
  Transmission Date: 20110411
  Serious: Yes (Other)
  Sender: FDA-Public Use
  Company Number: US-BAXTER-2009BH016574

PATIENT
  Age: 34 Year
  Sex: Female
  Weight: 130 kg

DRUGS (16)
  1. HEPARIN SODIUM INJECTION [Suspect]
     Indication: THROMBOSIS PROPHYLAXIS
     Route: 058
     Dates: start: 20071026, end: 20071028
  2. HEPARIN SODIUM INJECTION [Suspect]
     Route: 058
     Dates: start: 20071029, end: 20071101
  3. MYLANTA [Concomitant]
     Indication: DYSPEPSIA
     Route: 065
  4. HYDRALAZINE [Concomitant]
     Indication: PRODUCT USED FOR UNKNOWN INDICATION
     Route: 065
  5. CYTOTEC [Concomitant]
     Indication: LABOUR INDUCTION
     Route: 067
     Dates: start: 20071028
  6. LABETALOL HCL [Concomitant]
     Indication: PRODUCT USED FOR UNKNOWN INDICATION
     Route: 065
  7. DEXTROSTICK [Concomitant]
     Indication: PRODUCT USED FOR UNKNOWN INDICATION
     Route: 065
  8. PITOCIN                                 /CAN/ [Concomitant]
     Indication: LABOUR INDUCTION
     Route: 042
     Dates: start: 20071028
  9. PENICILLIN G SODIUM [Concomitant]
     Indication: PRODUCT USED FOR UNKNOWN INDICATION
     Route: 042
     Dates: start: 20071026, end: 20071028
  10. MAGNESIUM SULFATE [Concomitant]
     Indication: CONVULSION PROPHYLAXIS
     Route: 042
     Dates: start: 20081027
  11. PRENATAL VITAMINS [Concomitant]
     Indication: PRODUCT USED FOR UNKNOWN INDICATION
     Route: 065
  12. FENTANYL [Concomitant]
     Indication: PAIN
     Route: 065
     Dates: start: 20071028, end: 20071028
  13. ROPIVACAINE [Concomitant]
     Indication: SEDATION
     Route: 065
     Dates: start: 20071028, end: 20071028
  14. ANCEF [Concomitant]
     Indication: PRODUCT USED FOR UNKNOWN INDICATION
     Route: 042
     Dates: start: 20071026, end: 20071028
  15. IRON [Concomitant]
     Indication: PRODUCT USED FOR UNKNOWN INDICATION
     Route: 065
  16. CERVIDIL [Concomitant]
     Indication: LABOUR INDUCTION
     Route: 067

REACTIONS (18)
  - ABDOMINAL PAIN [None]
  - ASTHENIA [None]
  - BACK PAIN [None]
  - CHILLS [None]
  - DECREASED APPETITE [None]
  - DIZZINESS [None]
  - DRUG EXPOSURE DURING PREGNANCY [None]
  - DYSURIA [None]
  - HEADACHE [None]
  - HYPERHIDROSIS [None]
  - HYPERTENSION [None]
  - MALAISE [None]
  - NAUSEA [None]
  - PYELONEPHRITIS [None]
  - PYREXIA [None]
  - VAGINAL HAEMORRHAGE [None]
  - VISION BLURRED [None]
  - VOMITING [None]
